FAERS Safety Report 23090058 (Version 2)
Quarter: 2024Q4

REPORT INFORMATION
  Report Type: Spontaneous
  Country: US (occurrence: US)
  Receive Date: 20231020
  Receipt Date: 20241115
  Transmission Date: 20250114
  Serious: Yes (Death, Life-Threatening, Hospitalization, Other)
  Sender: CIPLA
  Company Number: US-MLMSERVICE-20231004-4583590-1

PATIENT

DRUGS (1)
  1. ESCITALOPRAM [Suspect]
     Active Substance: ESCITALOPRAM OXALATE
     Indication: Product used for unknown indication
     Dosage: UNK
     Route: 065

REACTIONS (3)
  - Cardiac arrest [Fatal]
  - Gastrointestinal haemorrhage [Fatal]
  - Clostridium bacteraemia [Recovered/Resolved]
